FAERS Safety Report 11343383 (Version 23)
Quarter: 2020Q3

REPORT INFORMATION
  Report Type: Spontaneous
  Country: BR (occurrence: BR)
  Receive Date: 20150806
  Receipt Date: 20200731
  Transmission Date: 20201102
  Serious: Yes (Hospitalization, Other)
  Sender: FDA-Public Use
  Company Number: BR-PFIZER INC-2014033892

PATIENT
  Age: 65 Year
  Sex: Male
  Weight: 95 kg

DRUGS (23)
  1. SUTENT [Suspect]
     Active Substance: SUNITINIB MALATE
     Dosage: 50 MG, CYCLIC (4X2 CYCLE)
     Route: 048
  2. SUTENT [Suspect]
     Active Substance: SUNITINIB MALATE
     Dosage: 50 MG, UNK
     Dates: start: 20170109, end: 20170713
  3. CORUS [Concomitant]
     Active Substance: LOSARTAN POTASSIUM
     Dosage: 1 DF, 2X/DAY
     Route: 048
     Dates: start: 1996
  4. SUTENT [Suspect]
     Active Substance: SUNITINIB MALATE
     Dosage: UNK
     Dates: start: 20180327
  5. ENALAPRIL [Concomitant]
     Active Substance: ENALAPRIL
     Dosage: UNK, 1X/DAY
     Route: 048
     Dates: start: 1996
  6. SUTENT [Suspect]
     Active Substance: SUNITINIB MALATE
     Dosage: UNK
     Route: 048
     Dates: start: 201501
  7. SUTENT [Suspect]
     Active Substance: SUNITINIB MALATE
     Dosage: UNK
     Route: 048
  8. DIGOXIN. [Concomitant]
     Active Substance: DIGOXIN
     Dosage: UNK, 1X/DAY
     Dates: start: 1996
  9. NIFEDIPINE. [Concomitant]
     Active Substance: NIFEDIPINE
     Dosage: UNK, 2X/DAY
  10. SUTENT [Suspect]
     Active Substance: SUNITINIB MALATE
     Dosage: 50 MG, CYCLIC (ONCE A DAY, 4X2 CYCLE)
     Route: 048
     Dates: start: 20140327, end: 201505
  11. SUTENT [Suspect]
     Active Substance: SUNITINIB MALATE
     Dosage: UNK
     Dates: start: 20180507, end: 20181018
  12. SUTENT [Suspect]
     Active Substance: SUNITINIB MALATE
     Indication: METASTATIC RENAL CELL CARCINOMA
     Dosage: 50 MG, CYCLIC (ONCE A DAY, 4X2 CYCLE)
     Route: 048
     Dates: start: 20131216
  13. DIVELOL [Concomitant]
     Dosage: UNK, 2X/DAY
     Route: 048
     Dates: start: 1996
  14. PRAMIL [Concomitant]
     Dosage: UNK
  15. ARADOIS [Concomitant]
     Active Substance: LOSARTAN POTASSIUM
     Dosage: UNK
  16. CARVEDILOL. [Concomitant]
     Active Substance: CARVEDILOL
     Dosage: UNK
  17. OMEGA 3 [Concomitant]
     Active Substance: OMEGA-3 FATTY ACIDS
     Dosage: UNK
  18. OMEPRAZOLE. [Concomitant]
     Active Substance: OMEPRAZOLE
     Dosage: UNK
  19. SUTENT [Suspect]
     Active Substance: SUNITINIB MALATE
     Dosage: UNK
     Dates: start: 201612
  20. SUTENT [Suspect]
     Active Substance: SUNITINIB MALATE
     Dosage: 50 MG, CYCLIC (28 TABLETS AND 15 DAYS REST)
     Dates: end: 20171031
  21. SUTENT [Suspect]
     Active Substance: SUNITINIB MALATE
     Dosage: UNK
  22. INDAPEN [Concomitant]
     Active Substance: INDAPAMIDE
     Dosage: 1 DF, DAILY
  23. SPIRONOLACTONE. [Concomitant]
     Active Substance: SPIRONOLACTONE
     Dosage: 1 DF, DAILY

REACTIONS (47)
  - Cardiac disorder [Unknown]
  - Neoplasm progression [Recovered/Resolved]
  - Rash [Not Recovered/Not Resolved]
  - Eyelid pain [Recovered/Resolved]
  - Skin irritation [Not Recovered/Not Resolved]
  - Dyspepsia [Recovered/Resolved]
  - Vitamin D decreased [Recovered/Resolved]
  - Skin abrasion [Not Recovered/Not Resolved]
  - Eyelid irritation [Recovered/Resolved]
  - Muscular weakness [Recovered/Resolved]
  - Skin sensitisation [Recovered/Resolved]
  - Hypertensive crisis [Recovered/Resolved]
  - Gastric disorder [Not Recovered/Not Resolved]
  - Influenza [Recovered/Resolved]
  - Urticaria [Recovered/Resolved]
  - Decreased immune responsiveness [Recovered/Resolved]
  - Hypersensitivity [Not Recovered/Not Resolved]
  - Hypoaesthesia [Not Recovered/Not Resolved]
  - Irritability [Not Recovered/Not Resolved]
  - Pain in extremity [Not Recovered/Not Resolved]
  - Swelling of eyelid [Recovered/Resolved]
  - Blood uric acid increased [Recovered/Resolved]
  - Blood triglycerides abnormal [Recovered/Resolved]
  - Arthralgia [Unknown]
  - Swelling face [Unknown]
  - Yellow skin [Not Recovered/Not Resolved]
  - Throat irritation [Recovered/Resolved]
  - Gastrooesophageal reflux disease [Recovered/Resolved]
  - Ingrowing nail [Recovered/Resolved]
  - Gastritis [Not Recovered/Not Resolved]
  - Pelvic pain [Recovered/Resolved]
  - Bone disorder [Not Recovered/Not Resolved]
  - Back pain [Not Recovered/Not Resolved]
  - Fatigue [Recovered/Resolved]
  - Hydrocele [Recovered/Resolved]
  - Suffocation feeling [Recovered/Resolved]
  - Ageusia [Not Recovered/Not Resolved]
  - Arthropathy [Not Recovered/Not Resolved]
  - Pallor [Not Recovered/Not Resolved]
  - Hyperthyroidism [Recovered/Resolved]
  - Hepatic steatosis [Recovered/Resolved]
  - Lacrimation increased [Recovered/Resolved]
  - Dry mouth [Not Recovered/Not Resolved]
  - Gait disturbance [Recovered/Resolved]
  - Blood creatinine increased [Recovered/Resolved]
  - Intervertebral disc disorder [Not Recovered/Not Resolved]
  - Skin hypertrophy [Not Recovered/Not Resolved]

NARRATIVE: CASE EVENT DATE: 20140305
